FAERS Safety Report 6494030-6 (Version None)
Quarter: 2009Q4

REPORT INFORMATION
  Report Type: 
  Country: None (occurrence: None)
  Receive Date: 20091214
  Receipt Date: 20081211
  Transmission Date: 20100525
  Serious: No
  Sender: FDA-Public Use
  Company Number: US-BRISTOL-MYERS SQUIBB COMPANY-14440994

PATIENT
  Age: 61 Year
  Sex: Female
  Weight: 91 kg

DRUGS (4)
  1. ABILIFY [Suspect]
     Indication: MAJOR DEPRESSION
  2. ABILIFY [Suspect]
     Indication: POST-TRAUMATIC STRESS DISORDER
  3. ABILIFY [Suspect]
     Indication: OBSESSIVE-COMPULSIVE DISORDER
  4. ABILIFY [Suspect]
     Indication: DISSOCIATIVE IDENTITY DISORDER

REACTIONS (5)
  - ERYTHEMA [None]
  - FATIGUE [None]
  - INSOMNIA [None]
  - RESTLESSNESS [None]
  - VISION BLURRED [None]
